FAERS Safety Report 10796330 (Version 3)
Quarter: 2015Q2

REPORT INFORMATION
  Report Type: Report from Study
  Country: US (occurrence: US)
  Receive Date: 20150216
  Receipt Date: 20150622
  Transmission Date: 20150821
  Serious: Yes (Death, Hospitalization)
  Sender: FDA-Public Use
  Company Number: US-BAYER-2015-013048

PATIENT
  Age: 63 Year
  Sex: Male
  Weight: 77 kg

DRUGS (19)
  1. ADDITIONAL STUDY MEDICATION [Suspect]
     Active Substance: UNSPECIFIED INGREDIENT
     Indication: OESOPHAGEAL ADENOCARCINOMA METASTATIC
     Dosage: 250 MG/M2, OW
     Route: 042
     Dates: start: 20150105, end: 20150119
  2. VITAMIN C [Concomitant]
     Active Substance: ASCORBIC ACID
     Indication: VITAMIN SUPPLEMENTATION
     Dosage: 1 DF, QD
     Route: 048
     Dates: start: 20131223
  3. VITAMIN B12 [Concomitant]
     Active Substance: CYANOCOBALAMIN
     Indication: VITAMIN SUPPLEMENTATION
     Dosage: 1000 MCG/ML, Q 30 DAYS
     Route: 030
     Dates: start: 20131104
  4. LORAZEPAM. [Concomitant]
     Active Substance: LORAZEPAM
     Indication: ANXIETY
     Dosage: 0.5 MG, Q 8HR
     Route: 060
     Dates: start: 20141020
  5. MULTIVITAMIN [Concomitant]
     Active Substance: VITAMINS
     Indication: VITAMIN SUPPLEMENTATION
     Dosage: 1 DF, QD
     Route: 048
     Dates: start: 20131104
  6. REGORAFENIB [Suspect]
     Active Substance: REGORAFENIB
     Indication: OESOPHAGEAL ADENOCARCINOMA METASTATIC
     Dosage: DAILY DOSE 100 MG
     Route: 048
     Dates: start: 20150112, end: 20150125
  7. ATROPINE W/DIPHENOXYLATE [Concomitant]
     Active Substance: ATROPINE\DIPHENOXYLATE
     Indication: PROPHYLAXIS AGAINST DIARRHOEA
     Dosage: 0.025/2.5 MG Q 6 HR, PRN
     Route: 048
     Dates: start: 20131223
  8. VITAMIN B12 [Concomitant]
     Active Substance: CYANOCOBALAMIN
     Indication: VITAMIN SUPPLEMENTATION
     Dosage: 1 TAB, QD
     Route: 048
     Dates: start: 20131223
  9. ZOFRAN [Concomitant]
     Active Substance: ONDANSETRON HYDROCHLORIDE
     Indication: PROPHYLAXIS OF NAUSEA AND VOMITING
     Dosage: 8 MG, Q 12HRS, PRN
     Route: 048
     Dates: start: 20141103, end: 20141208
  10. LORTAB [Concomitant]
     Active Substance: ACETAMINOPHEN\HYDROCODONE BITARTRATE
     Indication: BACK PAIN
     Dosage: 5/500 MG, Q 6HR, PRN
     Route: 048
     Dates: start: 20140814, end: 20150127
  11. ESOMEPRAZOLE [Concomitant]
     Active Substance: ESOMEPRAZOLE
     Indication: GASTROOESOPHAGEAL REFLUX DISEASE
     Dosage: 40 MG, QD
     Route: 048
     Dates: start: 20140814
  12. HYDROMORPHONE [Concomitant]
     Active Substance: HYDROMORPHONE
     Indication: BACK PAIN
     Dosage: 1 MG, ONCE
     Route: 042
     Dates: start: 20150105, end: 20150105
  13. REGORAFENIB [Suspect]
     Active Substance: REGORAFENIB
     Indication: OESOPHAGEAL ADENOCARCINOMA METASTATIC
     Dosage: DAILY DOSE 100 MG
     Route: 048
     Dates: start: 20141229
  14. VITAMIN D [Concomitant]
     Active Substance: CHOLECALCIFEROL
     Indication: VITAMIN SUPPLEMENTATION
     Dosage: 1000 IU, QD
     Route: 048
     Dates: start: 20131104
  15. MILK THISTLE [Concomitant]
     Active Substance: MILK THISTLE
     Indication: SUPPLEMENTATION THERAPY
     Dosage: 2 DF, BID
     Route: 048
     Dates: start: 20131223
  16. REGORAFENIB [Suspect]
     Active Substance: REGORAFENIB
     Indication: OESOPHAGEAL ADENOCARCINOMA METASTATIC
     Dosage: UNK
  17. GABAPENTIN. [Concomitant]
     Active Substance: GABAPENTIN
     Indication: NECK PAIN
     Dosage: 5 ML, QID
     Route: 048
     Dates: start: 20131209, end: 20150127
  18. REGLAN [Concomitant]
     Active Substance: METOCLOPRAMIDE HYDROCHLORIDE
     Indication: PROPHYLAXIS OF NAUSEA AND VOMITING
     Dosage: 10 MG, Q 6HR, PRN
     Route: 048
     Dates: start: 20141013, end: 20141124
  19. ZOFRAN [Concomitant]
     Active Substance: ONDANSETRON HYDROCHLORIDE
     Indication: PROPHYLAXIS OF NAUSEA AND VOMITING
     Dosage: 8 MG, BID, PRN
     Route: 048
     Dates: start: 20141125

REACTIONS (18)
  - Acute hepatic failure [Fatal]
  - Alanine aminotransferase increased [Recovered/Resolved]
  - Blood alkaline phosphatase increased [Not Recovered/Not Resolved]
  - Decreased appetite [Not Recovered/Not Resolved]
  - Diarrhoea [Not Recovered/Not Resolved]
  - Aspartate aminotransferase increased [Recovered/Resolved]
  - Upper respiratory tract infection [Recovered/Resolved]
  - Hyperuricaemia [Not Recovered/Not Resolved]
  - Blood bilirubin increased [Recovered/Resolved]
  - Disseminated intravascular coagulation [Not Recovered/Not Resolved]
  - Anaemia [Not Recovered/Not Resolved]
  - Gamma-glutamyltransferase increased [Not Recovered/Not Resolved]
  - Thrombocytopenia [None]
  - Hypertension [Not Recovered/Not Resolved]
  - Weight decreased [Not Recovered/Not Resolved]
  - Acute kidney injury [Not Recovered/Not Resolved]
  - Aspartate aminotransferase increased [Recovered/Resolved]
  - Hypoalbuminaemia [Not Recovered/Not Resolved]

NARRATIVE: CASE EVENT DATE: 20141222
